FAERS Safety Report 10099303 (Version 2)
Quarter: 2015Q3

REPORT INFORMATION
  Report Type: Spontaneous
  Country: US (occurrence: US)
  Receive Date: 20140423
  Receipt Date: 20150814
  Transmission Date: 20151125
  Serious: No
  Sender: FDA-Public Use
  Company Number: US-GILEAD-2013-0069432

PATIENT
  Age: 67 Year
  Sex: Female

DRUGS (2)
  1. LETAIRIS [Suspect]
     Active Substance: AMBRISENTAN
     Indication: COR PULMONALE CHRONIC
     Dosage: 10 MG, QD
     Route: 048
     Dates: start: 20080315
  2. VENTAVIS [Concomitant]
     Active Substance: ILOPROST

REACTIONS (4)
  - Blood potassium decreased [Unknown]
  - Muscular weakness [Unknown]
  - Scleroderma [Unknown]
  - Gait disturbance [Unknown]
